FAERS Safety Report 21988100 (Version 1)
Quarter: 2023Q1

REPORT INFORMATION
  Report Type: Spontaneous
  Country: RU (occurrence: RU)
  Receive Date: 20230214
  Receipt Date: 20230214
  Transmission Date: 20230418
  Serious: Yes (Hospitalization)
  Sender: FDA-Public Use
  Company Number: RU-ORGANON-O2302RUS000558

PATIENT
  Age: 59 Year
  Sex: Female

DRUGS (3)
  1. DIPROSPAN [Suspect]
     Active Substance: BETAMETHASONE DIPROPIONATE\BETAMETHASONE SODIUM PHOSPHATE
     Indication: Periarthritis
     Dosage: 1 MILLILITER, ONCE
     Route: 014
     Dates: start: 20230131, end: 20230131
  2. NEUROBION [Suspect]
     Active Substance: CYANOCOBALAMIN\PYRIDOXINE\THIAMINE
     Indication: Periarthritis
     Dosage: 3 MILLILITER, ONCE
     Route: 014
     Dates: start: 20230131, end: 20230131
  3. LIDOCAINE [Suspect]
     Active Substance: LIDOCAINE
     Indication: Periarthritis
     Dosage: 4 MILLILITER, ONCE
     Route: 014
     Dates: start: 20230131, end: 20230131

REACTIONS (3)
  - Asthenia [Recovering/Resolving]
  - Sinus tachycardia [Recovering/Resolving]
  - Vision blurred [Recovering/Resolving]

NARRATIVE: CASE EVENT DATE: 20230131
